FAERS Safety Report 18816769 (Version 1)
Quarter: 2021Q1

REPORT INFORMATION
  Report Type: Spontaneous
  Country: US (occurrence: US)
  Receive Date: 20210201
  Receipt Date: 20210201
  Transmission Date: 20210419
  Serious: No
  Sender: FDA-Public Use
  Company Number: US-JNJFOC-20210132340

PATIENT
  Age: 81 Year
  Sex: Female
  Weight: 62.6 kg

DRUGS (1)
  1. PARACETAMOL [Suspect]
     Active Substance: ACETAMINOPHEN
     Indication: PAIN
     Dosage: 500MG EVERY 4 HOURS
     Route: 065

REACTIONS (2)
  - Incorrect dose administered [Unknown]
  - Inappropriate schedule of product administration [Unknown]
